FAERS Safety Report 13972350 (Version 1)
Quarter: 2017Q3

REPORT INFORMATION
  Report Type: Spontaneous
  Country: US (occurrence: None)
  Receive Date: 20170914
  Receipt Date: 20170914
  Transmission Date: 20171128
  Serious: No
  Sender: FDA-Public Use
  Company Number: None

PATIENT
  Age: 20 Year
  Sex: Female

DRUGS (1)
  1. HUMIRA [Suspect]
     Active Substance: ADALIMUMAB
     Indication: MALAISE
     Dosage: 40MG Q 14 DAYS SQ
     Route: 058
     Dates: start: 20170818

REACTIONS (3)
  - Drug ineffective [None]
  - Rash [None]
  - Contusion [None]

NARRATIVE: CASE EVENT DATE: 20170909
